FAERS Safety Report 5999855-9 (Version None)
Quarter: 2008Q4

REPORT INFORMATION
  Report Type: 
  Country: None (occurrence: None)
  Receive Date: 20081215
  Receipt Date: 20081202
  Transmission Date: 20090506
  Serious: Yes (Hospitalization)
  Sender: FDA-Public Use
  Company Number: DE-JNJFOC-20070402682

PATIENT
  Age: 46 Year
  Sex: Female

DRUGS (8)
  1. IXPRIM [Suspect]
     Indication: PAIN
     Route: 048
  2. ALTIM [Suspect]
     Indication: SYNOVITIS
     Route: 014
  3. TELFAST [Suspect]
     Indication: DRUG USE FOR UNKNOWN INDICATION
     Route: 048
  4. DAFALGAN [Suspect]
     Indication: PAIN
     Route: 048
  5. NOVATREX [Concomitant]
     Indication: RHEUMATOID ARTHRITIS
     Route: 048
  6. CORTANCYL [Concomitant]
     Indication: RHEUMATOID ARTHRITIS
     Route: 048
  7. SPECIAFOLDINE [Concomitant]
     Indication: RHEUMATOID ARTHRITIS
     Route: 048
  8. OROCAL VITAMIN D [Concomitant]
     Route: 048

REACTIONS (3)
  - POLYARTHRITIS [None]
  - PYREXIA [None]
  - RASH MACULO-PAPULAR [None]
